FAERS Safety Report 6764938-2 (Version None)
Quarter: 2010Q2

REPORT INFORMATION
  Report Type: 
  Country: None (occurrence: None)
  Receive Date: 20100610
  Receipt Date: 20100531
  Transmission Date: 20101027
  Serious: Yes (Hospitalization)
  Sender: FDA-Public Use
  Company Number: JP-AMGEN-US336949

PATIENT
  Sex: Female
  Weight: 39 kg

DRUGS (27)
  1. ENBREL [Suspect]
     Indication: RHEUMATOID ARTHRITIS
     Route: 058
     Dates: start: 20080402, end: 20080710
  2. ENBREL [Suspect]
     Dosage: SOLUTION FOR INJECTION: 25 MG TWICE WEEKLY
     Route: 058
     Dates: start: 20080901, end: 20081020
  3. ENBREL [Suspect]
     Dosage: SOLUTION FOR INJECTION: 25 MG TWICE WEEKLY
     Route: 058
     Dates: start: 20081119
  4. ENBREL [Suspect]
     Route: 058
     Dates: end: 20090622
  5. ENBREL [Suspect]
     Dosage: SOLUTION FOR INJECTION: 25 MG TWICE WEEKLY
     Route: 058
     Dates: start: 20090721, end: 20091026
  6. ENBREL [Suspect]
     Route: 058
     Dates: start: 20091027, end: 20091208
  7. ENBREL [Suspect]
     Route: 058
     Dates: start: 20091211
  8. ENBREL [Suspect]
     Dosage: UNSPECIFIED
     Dates: start: 20091229
  9. RHEUMATREX [Suspect]
     Indication: RHEUMATOID ARTHRITIS
     Route: 048
  10. PREDNISOLONE [Suspect]
     Indication: RHEUMATOID ARTHRITIS
     Route: 048
     Dates: start: 20020101, end: 20080523
  11. PREDNISOLONE [Suspect]
     Route: 048
     Dates: start: 20080524, end: 20090708
  12. PREDNISOLONE [Suspect]
     Dosage: UNSPECIFIED
     Route: 048
     Dates: start: 20090716, end: 20090910
  13. PREDNISOLONE [Suspect]
     Route: 048
     Dates: start: 20090911, end: 20091226
  14. PREDNISOLONE [Suspect]
     Route: 048
     Dates: start: 20091227
  15. BASEN [Concomitant]
     Route: 048
  16. ASPARTATE CALCIUM [Concomitant]
     Route: 048
  17. GLAKAY [Concomitant]
     Route: 048
  18. FOSAMAX [Concomitant]
     Route: 048
  19. FOLIAMIN [Concomitant]
     Route: 048
  20. ALFACALCIDOL [Concomitant]
     Route: 048
  21. MUCOSTA [Concomitant]
     Dosage: UNSPECIFIED
     Route: 048
  22. KETOPROFEN [Concomitant]
     Dosage: UNSPECIFIED; TAPE
  23. LOXONIN [Concomitant]
     Route: 048
     Dates: start: 20020101
  24. LOXONIN [Concomitant]
     Dosage: UNSPECIFIED
  25. MYSLEE [Concomitant]
     Route: 048
  26. CRESTOR [Concomitant]
     Dosage: UNSPECIFIED
     Route: 048
  27. LIPITOR [Concomitant]
     Route: 048

REACTIONS (4)
  - BACTERAEMIA [None]
  - CONDITION AGGRAVATED [None]
  - HUMERUS FRACTURE [None]
  - RHEUMATOID ARTHRITIS [None]
